FAERS Safety Report 8968924 (Version 2)
Quarter: 2013Q1

REPORT INFORMATION
  Report Type: Spontaneous
  Country: US (occurrence: US)
  Receive Date: 20121217
  Receipt Date: 20130131
  Transmission Date: 20140127
  Serious: Yes (Life-Threatening, Hospitalization, Other)
  Sender: FDA-Public Use
  Company Number: US-BAYER-2012-131831

PATIENT
  Age: 58 Year
  Sex: Male
  Weight: 92.52 kg

DRUGS (3)
  1. BAYER ADVANCED ASPIRIN EXTRA STRENGTH [Suspect]
     Indication: HEADACHE
     Dosage: 2 DF, TID
     Route: 048
  2. MORPHINE [Concomitant]
  3. DILAUDID [Concomitant]

REACTIONS (13)
  - Haemorrhagic diathesis [Recovered/Resolved]
  - Weight increased [None]
  - Weight decreased [None]
  - Injection site haemorrhage [None]
  - Diabetes mellitus [None]
  - Coma [None]
  - Abdominal operation [None]
  - Spinal operation [None]
  - Drug ineffective [None]
  - Multi-organ failure [None]
  - Amnesia [None]
  - Arthropathy [None]
  - Visual impairment [None]
